FAERS Safety Report 24981061 (Version 1)
Quarter: 2025Q1

REPORT INFORMATION
  Report Type: Spontaneous
  Country: US (occurrence: None)
  Receive Date: 20250215
  Receipt Date: 20250215
  Transmission Date: 20250408
  Serious: Yes (Disabling)
  Sender: FDA-CTU
  Company Number: None

PATIENT
  Age: 83 Year
  Sex: Male
  Weight: 99 kg

DRUGS (5)
  1. SPIRONOLACTONE [Suspect]
     Active Substance: SPIRONOLACTONE
     Indication: Oedema peripheral
     Dates: start: 20250205, end: 20250206
  2. ELIQUIS [Concomitant]
     Active Substance: APIXABAN
  3. prvastatin [Concomitant]
  4. once a day vitiamin [Concomitant]
  5. PARAFFIN [Concomitant]
     Active Substance: PARAFFIN

REACTIONS (3)
  - Urticaria [None]
  - Pruritus [None]
  - Blister [None]

NARRATIVE: CASE EVENT DATE: 20250205
